FAERS Safety Report 21474651 (Version 1)
Quarter: 2022Q4

REPORT INFORMATION
  Report Type: Spontaneous
  Country: US (occurrence: US)
  Receive Date: 20221018
  Receipt Date: 20221018
  Transmission Date: 20230112
  Serious: No
  Sender: FDA-Public Use
  Company Number: US-JNJFOC-20221014790

PATIENT

DRUGS (1)
  1. BALVERSA [Suspect]
     Active Substance: ERDAFITINIB
     Indication: Transitional cell carcinoma
     Dosage: USED FOR FIBROBLAST GROWTH FACTOR RECEPTORS (FGFR) PLUS METASTATIC UROTHELIAL CARCINOMA
     Route: 065

REACTIONS (1)
  - Paronychia [Unknown]
